FAERS Safety Report 9805715 (Version 1)
Quarter: 2014Q1

REPORT INFORMATION
  Report Type: Spontaneous
  Country: US (occurrence: None)
  Receive Date: 20140108
  Receipt Date: 20140108
  Transmission Date: 20141002
  Serious: Yes (Hospitalization)
  Sender: FDA-Public Use
  Company Number: None

PATIENT
  Sex: Male
  Weight: 144.5 kg

DRUGS (2)
  1. CHLORHEXIDINE GLUCONATE [Suspect]
     Indication: CANCER SURGERY
     Dates: start: 20130916, end: 20130916
  2. PROPOFOL [Suspect]
     Indication: LIGHT ANAESTHESIA
     Route: 042
     Dates: start: 20130916, end: 20130916

REACTIONS (1)
  - Anaphylactic reaction [None]
